FAERS Safety Report 18544265 (Version 1)
Quarter: 2020Q4

REPORT INFORMATION
  Report Type: Spontaneous
  Country: JP (occurrence: JP)
  Receive Date: 20201125
  Receipt Date: 20201125
  Transmission Date: 20210114
  Serious: Yes (Other)
  Sender: FDA-Public Use
  Company Number: JP-AMGEN-JPNSP2020188636

PATIENT
  Sex: Male

DRUGS (2)
  1. LENOGRASTIM [Concomitant]
     Active Substance: LENOGRASTIM
     Dosage: 100 MICROGRAM, QD
  2. BLINATUMOMAB [Suspect]
     Active Substance: BLINATUMOMAB
     Indication: PRECURSOR B-LYMPHOBLASTIC LYMPHOMA RECURRENT
     Dosage: UNK
     Route: 065

REACTIONS (3)
  - Neuropathy peripheral [Recovering/Resolving]
  - Rash [Recovering/Resolving]
  - Neutropenia [Recovered/Resolved]
